FAERS Safety Report 7509919-6 (Version None)
Quarter: 2011Q2

REPORT INFORMATION
  Report Type: 
  Country: None (occurrence: None)
  Receive Date: 20110527
  Receipt Date: 20110523
  Transmission Date: 20111010
  Serious: Yes (Life-Threatening, Hospitalization)
  Sender: FDA-Public Use
  Company Number: US-ASTRAZENECA-2011SE31720

PATIENT
  Age: 824 Month
  Sex: Male
  Weight: 94.8 kg

DRUGS (2)
  1. CRESTOR [Suspect]
     Route: 048
     Dates: start: 20070802
  2. LISINOPRIL [Concomitant]

REACTIONS (4)
  - VASCULAR GRAFT [None]
  - HEART TRANSPLANT [None]
  - APPARENT DEATH [None]
  - MYOCARDIAL INFARCTION [None]
